FAERS Safety Report 21490973 (Version 1)
Quarter: 2022Q4

REPORT INFORMATION
  Report Type: Spontaneous
  Country: SA (occurrence: SA)
  Receive Date: 20221021
  Receipt Date: 20221021
  Transmission Date: 20230113
  Serious: Yes (Death, Life-Threatening, Other)
  Sender: FDA-Public Use
  Company Number: SA-AMGEN-SAUSP2022178574

PATIENT

DRUGS (8)
  1. PANITUMUMAB [Suspect]
     Active Substance: PANITUMUMAB
     Indication: Colorectal cancer metastatic
     Dosage: UNK
     Route: 065
  2. OXALIPLATIN [Concomitant]
     Active Substance: OXALIPLATIN
     Indication: Colorectal cancer metastatic
     Dosage: UNK
     Route: 065
  3. FLUOROURACIL [Concomitant]
     Active Substance: FLUOROURACIL
     Indication: Colorectal cancer metastatic
     Dosage: UNK
     Route: 065
  4. LEUCOVORIN [Concomitant]
     Active Substance: LEUCOVORIN
     Indication: Colorectal cancer metastatic
     Dosage: UNK
     Route: 065
  5. IRINOTECAN [Concomitant]
     Active Substance: IRINOTECAN
     Indication: Colorectal cancer metastatic
     Dosage: UNK
  6. CETUXIMAB [Concomitant]
     Active Substance: CETUXIMAB
     Indication: Colorectal cancer metastatic
     Dosage: UNK
     Route: 065
  7. BEVACIZUMAB [Concomitant]
     Active Substance: BEVACIZUMAB
     Indication: Colorectal cancer metastatic
     Dosage: UNK
     Route: 065
  8. TIPIRACIL HYDROCHLORIDE\TRIFLURIDINE [Concomitant]
     Active Substance: TIPIRACIL HYDROCHLORIDE\TRIFLURIDINE
     Indication: Colorectal cancer metastatic
     Dosage: UNK
     Route: 065

REACTIONS (3)
  - Death [Fatal]
  - Neutropenia [Unknown]
  - Colorectal cancer metastatic [Unknown]
